FAERS Safety Report 13349426 (Version 3)
Quarter: 2018Q2

REPORT INFORMATION
  Report Type: Report from Study
  Country: None (occurrence: US)
  Receive Date: 20170320
  Receipt Date: 20180529
  Transmission Date: 20180711
  Serious: Yes (Hospitalization, Other)
  Sender: FDA-Public Use
  Company Number: US-ABBVIE-16K-163-1632486-00

PATIENT
  Age: 62 Year
  Sex: Male
  Weight: 89.89 kg

DRUGS (3)
  1. HUMIRA [Suspect]
     Active Substance: ADALIMUMAB
     Indication: COLITIS ULCERATIVE
     Route: 058
     Dates: start: 200504, end: 200504
  2. HUMIRA [Suspect]
     Active Substance: ADALIMUMAB
     Indication: CROHN^S DISEASE
     Route: 058
     Dates: start: 201505
  3. ELIQUIS [Concomitant]
     Active Substance: APIXABAN
     Indication: THROMBOSIS PROPHYLAXIS

REACTIONS (11)
  - Thrombosis [Recovered/Resolved]
  - Peripheral swelling [Recovered/Resolved]
  - Hyperhidrosis [Recovering/Resolving]
  - Thrombosis [Recovered/Resolved]
  - Thrombosis [Recovering/Resolving]
  - Sciatica [Not Recovered/Not Resolved]
  - Osteoarthritis [Recovering/Resolving]
  - Knee arthroplasty [Unknown]
  - Peripheral swelling [Recovered/Resolved]
  - Gait inability [Unknown]
  - Pyrexia [Recovering/Resolving]

NARRATIVE: CASE EVENT DATE: 201503
